FAERS Safety Report 5911052-1 (Version None)
Quarter: 2008Q4

REPORT INFORMATION
  Report Type: 
  Country: None (occurrence: None)
  Receive Date: 20081007
  Receipt Date: 20080923
  Transmission Date: 20090506
  Serious: Yes (Hospitalization)
  Sender: FDA-Public Use
  Company Number: US-ELI_LILLY_AND_COMPANY-US200809005871

PATIENT
  Age: 63 Year
  Sex: Female

DRUGS (17)
  1. EVISTA [Suspect]
     Indication: OSTEOPOROSIS
     Dosage: 60 MG, UNKNOWN
     Route: 065
     Dates: start: 20010901, end: 20080901
  2. SINGULAIR [Concomitant]
     Dosage: 10 MG, DAILY (1/D)
     Route: 065
     Dates: start: 20080225
  3. ALBUTEROL SULFATE [Concomitant]
     Dosage: 90 UG, EVERY 6 HRS
     Route: 055
     Dates: start: 20080818
  4. ALBUTEROL [Concomitant]
     Dosage: 90 UG, EVERY 6 HRS
     Route: 065
     Dates: start: 20080902
  5. FLOVENT [Concomitant]
     Dosage: 220 UG, DAILY (1/D)
     Route: 055
     Dates: start: 20080902
  6. MOMETASONE FUROATE [Concomitant]
     Dosage: 50 UG, DAILY (1/D)
     Route: 045
     Dates: start: 20080902
  7. LYRICA [Concomitant]
     Dosage: 50 MG, 3/D
     Route: 065
     Dates: start: 20080523
  8. BUSPAR [Concomitant]
     Dosage: 5 MG, DAILY (1/D)
     Route: 065
     Dates: start: 20080905
  9. FEXOFENADINE HYDROCHLORIDE [Concomitant]
     Dosage: 60 MG, 2/D
     Route: 048
     Dates: start: 20080521
  10. CYMBALTA [Concomitant]
     Dosage: 20 MG, DAILY (1/D)
     Route: 065
     Dates: start: 20080818
  11. CALCIUM CARBONATE + VITAMIN D [Concomitant]
     Dosage: UNK, 2/D
     Route: 065
     Dates: start: 20080613
  12. NEXIUM [Concomitant]
     Dosage: 40 MG, DAILY (1/D)
     Route: 065
     Dates: start: 20080613
  13. VALTREX [Concomitant]
     Dosage: 500 MG, DAILY (1/D)
     Route: 065
     Dates: start: 20080613
  14. COUMADIN [Concomitant]
     Dosage: 6 MG, EACH EVENING
     Route: 065
     Dates: start: 20080922
  15. ERGOCALCIFEROL [Concomitant]
     Dosage: 5000 IU, WEEKLY (1/W)
     Route: 065
     Dates: start: 20080818
  16. TRAMADOL HCL [Concomitant]
     Dosage: UNK, DAILY (1/D)
     Route: 065
  17. ACETAMINOPHEN [Concomitant]
     Dosage: UNK, DAILY (1/D)
     Route: 065
     Dates: start: 20080922

REACTIONS (1)
  - HOSPITALISATION [None]
